FAERS Safety Report 8575306-5 (Version None)
Quarter: 2012Q3

REPORT INFORMATION
  Report Type: 
  Country: None (occurrence: None)
  Receive Date: 20120807
  Receipt Date: 20120801
  Transmission Date: 20120928
  Serious: Yes (Other)
  Sender: FDA-Public Use
  Company Number: US-PFIZER INC-2011055354

PATIENT
  Age: 65 Year
  Sex: Male

DRUGS (18)
  1. PHOSLO [Concomitant]
     Indication: PRODUCT USED FOR UNKNOWN INDICATION
     Dosage: 667 MG, WITH NOON AND EVENING MEAL
  2. REVLIMID [Suspect]
     Indication: AMYLOIDOSIS
     Dosage: 10 MG, 21 IN 21 D
     Route: 048
     Dates: start: 20110101
  3. REVLIMID [Suspect]
     Dosage: 15 MG, 1 IN 1D
     Route: 048
     Dates: start: 20110201, end: 20110224
  4. REVLIMID [Suspect]
     Dosage: 5 MG, 21 IN 21 D
     Route: 048
     Dates: start: 20110801
  5. LASIX [Concomitant]
     Indication: PRODUCT USED FOR UNKNOWN INDICATION
     Dosage: 40 MG, 1X/DAY
  6. COUMADIN [Suspect]
     Dosage: 2 MG, UNK
     Route: 065
  7. XANAX [Concomitant]
     Indication: PRODUCT USED FOR UNKNOWN INDICATION
     Dosage: 0.25 MG, 1/2 - 1 3X/DAY OR AS NEEDED
  8. ARMODAFINIL [Suspect]
     Indication: PRODUCT USED FOR UNKNOWN INDICATION
     Dosage: 400 MG, 1X/DAY
     Route: 065
     Dates: start: 20100501
  9. COREG [Concomitant]
     Indication: PRODUCT USED FOR UNKNOWN INDICATION
     Dosage: 12.5 MG, 2X/DAY
  10. COUMADIN [Suspect]
     Dosage: 2.5 MG, UNK
     Route: 065
     Dates: end: 20110227
  11. ZOLOFT [Concomitant]
     Indication: PRODUCT USED FOR UNKNOWN INDICATION
     Dosage: 50 MG, 1X/DAY
  12. COLACE [Concomitant]
     Indication: PRODUCT USED FOR UNKNOWN INDICATION
     Dosage: ONCE DAILY
  13. CRESTOR [Concomitant]
     Indication: PRODUCT USED FOR UNKNOWN INDICATION
     Dosage: 20 MG, BED TIME
  14. CARDURA [Concomitant]
     Indication: PRODUCT USED FOR UNKNOWN INDICATION
     Dosage: 8 MG, BED TIME
  15. REVLIMID [Suspect]
     Dosage: 10 MG, 1 IN 1D
     Route: 048
     Dates: start: 20110607, end: 20110630
  16. HYDRALAZINE [Concomitant]
     Indication: PRODUCT USED FOR UNKNOWN INDICATION
     Dosage: 10 MG, EVERY 8 HRS
  17. REVLIMID [Suspect]
     Dosage: 5 MG, 1 IN 2 D
     Route: 048
     Dates: start: 20120401, end: 20120101
  18. DEXAMETHASONE [Concomitant]
     Indication: PRODUCT USED FOR UNKNOWN INDICATION
     Dosage: 20 MG, WEEKLY
     Dates: start: 20100501

REACTIONS (2)
  - PLATELET COUNT DECREASED [None]
  - THROMBOCYTOPENIA [None]
